FAERS Safety Report 9602256 (Version 5)
Quarter: 2014Q1

REPORT INFORMATION
  Report Type: Report from Study
  Country: GB (occurrence: GB)
  Receive Date: 20131007
  Receipt Date: 20140324
  Transmission Date: 20141002
  Serious: Yes (Death)
  Sender: FDA-Public Use
  Company Number: GB-PFIZER INC-2013283502

PATIENT
  Sex: Female
  Weight: 55 kg

DRUGS (10)
  1. TYGACIL [Suspect]
     Indication: CHOLECYSTITIS
     Dosage: 100 MG, SINGLE
     Route: 042
     Dates: start: 20100318, end: 20100318
  2. TYGACIL [Suspect]
     Dosage: 50 MG, 2X/DAY
     Route: 042
     Dates: start: 20100318
  3. SALBUTAMOL [Concomitant]
     Indication: CHRONIC OBSTRUCTIVE PULMONARY DISEASE
     Dosage: UNK
     Dates: start: 20100318
  4. PARACETAMOL [Concomitant]
     Indication: ANALGESIC THERAPY
     Dosage: UNK
     Route: 048
     Dates: start: 20100318
  5. TRAMADOL [Concomitant]
     Indication: ANALGESIC THERAPY
     Dosage: UNK
     Route: 048
     Dates: start: 20100318, end: 20100320
  6. OMEPRAZOLE [Concomitant]
     Dosage: UNK
     Route: 042
     Dates: start: 20100318, end: 20100320
  7. ORAMORPH [Concomitant]
     Dosage: UNK
     Route: 048
     Dates: start: 20100318, end: 20100318
  8. CYCLIZINE [Concomitant]
     Dosage: UNK
     Route: 048
     Dates: start: 20100319, end: 20100320
  9. CYCLIZINE [Concomitant]
     Dosage: UNK
     Route: 042
     Dates: start: 20100319, end: 20100320
  10. CYCLIZINE [Concomitant]
     Dosage: UNK
     Route: 030
     Dates: start: 20100319, end: 20100320

REACTIONS (4)
  - Disease progression [Fatal]
  - Cholecystitis [Fatal]
  - Sepsis [Fatal]
  - Pneumonia [Fatal]
